FAERS Safety Report 6927259-0 (Version None)
Quarter: 2010Q3

REPORT INFORMATION
  Report Type: 
  Country: None (occurrence: None)
  Receive Date: 20100817
  Receipt Date: 20100308
  Transmission Date: 20110219
  Serious: Yes (Hospitalization)
  Sender: FDA-Public Use
  Company Number: US-BIOGENIDEC-2009BI038352

PATIENT
  Age: 51 Year
  Sex: Female
  Weight: 56 kg

DRUGS (2)
  1. TYSABRI [Suspect]
     Indication: MULTIPLE SCLEROSIS
     Route: 042
     Dates: start: 20081030, end: 20091016
  2. PROVIGIL [Concomitant]

REACTIONS (11)
  - ANXIETY [None]
  - ASTHENIA [None]
  - CENTRAL VENOUS CATHETERISATION [None]
  - FATIGUE [None]
  - HEADACHE [None]
  - MENINGITIS HERPES [None]
  - MULTIPLE SCLEROSIS RELAPSE [None]
  - NECK PAIN [None]
  - OPTIC NEURITIS [None]
  - PYREXIA [None]
  - WHITE BLOOD CELL COUNT INCREASED [None]
